FAERS Safety Report 7766216 (Version 13)
Quarter: 2024Q3

REPORT INFORMATION
  Report Type: Report from Study
  Country: JP (occurrence: JP)
  Receive Date: 20110119
  Receipt Date: 20240816
  Transmission Date: 20241016
  Serious: Yes (Life-Threatening, Hospitalization)
  Sender: PFIZER
  Company Number: JP-PFIZER INC-2011010579

PATIENT
  Age: 65 Year
  Sex: Male

DRUGS (43)
  1. ADRIACIN [Suspect]
     Active Substance: DOXORUBICIN HYDROCHLORIDE
     Indication: Adult T-cell lymphoma/leukaemia
     Dosage: 40 MG/M2, UNK
     Route: 041
     Dates: start: 20101007, end: 20101007
  2. ADRIACIN [Suspect]
     Active Substance: DOXORUBICIN HYDROCHLORIDE
     Dosage: 30 MG/M2, UNK
     Route: 041
     Dates: start: 20101014, end: 20101014
  3. ADRIACIN [Suspect]
     Active Substance: DOXORUBICIN HYDROCHLORIDE
     Dosage: 40 MG/M2, UNK
     Route: 041
     Dates: start: 20101116, end: 20101116
  4. ADRIACIN [Suspect]
     Active Substance: DOXORUBICIN HYDROCHLORIDE
     Dosage: 30 MG/M2, UNK
     Route: 041
     Dates: start: 20101124, end: 20101124
  5. ADRIACIN [Suspect]
     Active Substance: DOXORUBICIN HYDROCHLORIDE
     Dosage: 40 MG/M2, UNK
     Route: 041
     Dates: start: 20101222, end: 20101222
  6. ADRIACIN [Suspect]
     Active Substance: DOXORUBICIN HYDROCHLORIDE
     Dosage: 30 MG/M2, UNK
     Route: 041
     Dates: start: 20101229, end: 20101229
  7. METHOTREXATE SODIUM [Suspect]
     Active Substance: METHOTREXATE SODIUM
     Dosage: 15 MG, DAILY
     Dates: start: 20101118, end: 20101118
  8. DIFLUCAN [Suspect]
     Active Substance: FLUCONAZOLE
     Indication: Antifungal prophylaxis
     Dosage: 100 MG, 1X/DAY
     Route: 048
     Dates: end: 20110111
  9. DIFLUCAN [Suspect]
     Active Substance: FLUCONAZOLE
     Dosage: UNK
     Route: 048
     Dates: start: 20110119, end: 20110128
  10. MEROPENEM [Suspect]
     Active Substance: MEROPENEM
     Indication: Pneumonia
     Dosage: 0.5 G, 2X/DAY
     Route: 041
     Dates: start: 20110107, end: 20110124
  11. MEROPENEM [Suspect]
     Active Substance: MEROPENEM
     Dosage: 1 G, 3X/DAY
     Route: 041
     Dates: start: 20110704, end: 20110715
  12. AMLODIPINE BESYLATE [Suspect]
     Active Substance: AMLODIPINE BESYLATE
     Indication: Hypertension
     Dosage: 5 MG, 1X/DAY
     Route: 048
     Dates: start: 20101008, end: 20110217
  13. PREGABALIN [Suspect]
     Active Substance: PREGABALIN
     Indication: Pain
     Dosage: 75 MG, 1X/DAY (LYRICA)
     Route: 048
     Dates: start: 20110629, end: 20110719
  14. VANCOMYCIN [Suspect]
     Active Substance: VANCOMYCIN
     Indication: Pneumonia
     Dosage: 0.5 G, 2X/DAY
     Route: 041
     Dates: start: 20110107, end: 20110117
  15. MOGAMULIZUMAB [Suspect]
     Active Substance: MOGAMULIZUMAB
     Indication: Adult T-cell lymphoma/leukaemia
     Dosage: 1 MG/KG, UNK
     Route: 041
     Dates: start: 20101008, end: 20101221
  16. ONCOVIN [Suspect]
     Active Substance: VINCRISTINE SULFATE
     Indication: Adult T-cell lymphoma/leukaemia
     Dosage: 1 MG/M2, UNK
     Route: 041
     Dates: start: 20101007, end: 20101222
  17. CYCLOPHOSPHAMIDE [Suspect]
     Active Substance: CYCLOPHOSPHAMIDE
     Indication: Adult T-cell lymphoma/leukaemia
     Dosage: 350 MG/M2, UNK
     Route: 041
     Dates: start: 20101007, end: 20101222
  18. PREDNISOLONE [Suspect]
     Active Substance: PREDNISOLONE
     Indication: Adult T-cell lymphoma/leukaemia
     Dosage: 40 MG/M2, UNK
     Route: 048
     Dates: start: 20101007, end: 20101229
  19. RANIMUSTINE [Suspect]
     Active Substance: RANIMUSTINE
     Indication: Adult T-cell lymphoma/leukaemia
     Dosage: 60 MG/M2, UNK
     Route: 041
     Dates: start: 20101014, end: 20101229
  20. VINDESINE SULFATE [Suspect]
     Active Substance: VINDESINE SULFATE
     Indication: Adult T-cell lymphoma/leukaemia
     Dosage: 2.4 MG/M2, UNK
     Route: 041
     Dates: start: 20101026, end: 20101208
  21. CARBOPLATIN [Suspect]
     Active Substance: CARBOPLATIN
     Indication: Adult T-cell lymphoma/leukaemia
     Dosage: 250 MG/M2, UNK
     Route: 041
     Dates: start: 20101026, end: 20101208
  22. ETOPOSIDE [Suspect]
     Active Substance: ETOPOSIDE
     Indication: Adult T-cell lymphoma/leukaemia
     Dosage: 100 MG/M2, 3X/DAY
     Route: 041
     Dates: start: 20101026, end: 20101208
  23. CYTARABINE [Suspect]
     Active Substance: CYTARABINE
     Indication: Adult T-cell lymphoma/leukaemia
     Dosage: 40 MG, DAILY
     Dates: start: 20101118, end: 20101118
  24. PREDONINE [Suspect]
     Active Substance: PREDNISOLONE
     Indication: Adult T-cell lymphoma/leukaemia
     Dosage: 10 MG, DAILY
     Dates: start: 20101118, end: 20101118
  25. LANSOPRAZOLE [Suspect]
     Active Substance: LANSOPRAZOLE
     Indication: Gastrooesophageal reflux disease
     Dosage: 15 MG, 1X/DAY
     Route: 048
     Dates: end: 20110217
  26. LANSOPRAZOLE [Suspect]
     Active Substance: LANSOPRAZOLE
     Dosage: 15 MG, 1X/DAY
     Route: 048
     Dates: start: 20110526, end: 20110719
  27. SULFAMETHOXAZOLE\TRIMETHOPRIM [Suspect]
     Active Substance: SULFAMETHOXAZOLE\TRIMETHOPRIM
     Indication: Antifungal prophylaxis
     Dosage: 1 DF, 1X/DAY
     Route: 048
     Dates: end: 20110128
  28. SULFAMETHOXAZOLE\TRIMETHOPRIM [Suspect]
     Active Substance: SULFAMETHOXAZOLE\TRIMETHOPRIM
     Dosage: 1 DF, 1X/DAY
     Route: 048
     Dates: start: 20110715
  29. ZOVIRAX [Suspect]
     Active Substance: ACYCLOVIR
     Indication: Prophylaxis
     Dosage: 200 MG, 1X/DAY
     Route: 048
     Dates: end: 20110128
  30. ZOVIRAX [Suspect]
     Active Substance: ACYCLOVIR
     Dosage: UNK
     Dates: start: 20110630, end: 20110708
  31. ZOVIRAX [Suspect]
     Active Substance: ACYCLOVIR
     Dosage: 200 MG, 1X/DAY
     Route: 048
     Dates: start: 20110712, end: 20110719
  32. ALLOPURINOL [Suspect]
     Active Substance: ALLOPURINOL
     Indication: Hyperuricaemia
     Dosage: 100 MG, 1X/DAY
     Route: 048
     Dates: end: 20110120
  33. ALLOPURINOL [Suspect]
     Active Substance: ALLOPURINOL
     Indication: Prophylaxis
     Dosage: 100 MG, 3X/DAY
     Route: 048
     Dates: start: 20110705, end: 20110719
  34. DIETARY SUPPLEMENT\PROBIOTICS [Suspect]
     Active Substance: DIETARY SUPPLEMENT\PROBIOTICS NOS
     Indication: Proctitis
     Dosage: UNK
     Route: 048
     Dates: start: 20101022, end: 20110217
  35. LIPIDIL [Suspect]
     Active Substance: FENOFIBRATE
     Indication: Hyperlipidaemia
     Dosage: 100 DF, 1X/DAY
     Route: 048
     Dates: end: 20110126
  36. FENTANYL [Suspect]
     Active Substance: FENTANYL\FENTANYL CITRATE
     Indication: Stomatitis
     Dosage: UNK
     Route: 041
     Dates: start: 20110102, end: 20110119
  37. MAGNESIUM OXIDE [Suspect]
     Active Substance: MAGNESIUM OXIDE
     Indication: Constipation
     Dosage: UNK
     Route: 048
     Dates: start: 20110107, end: 20110110
  38. PANTETHINE [Suspect]
     Active Substance: PANTETHINE
     Indication: Constipation
     Dosage: UNK
     Route: 048
     Dates: start: 20110107, end: 20110110
  39. BARACLUDE [Suspect]
     Active Substance: ENTECAVIR
     Indication: Hepatitis B
     Dosage: 0.5 MG, 1/2DAY
     Route: 048
     Dates: start: 20100629, end: 20110719
  40. VFEND [Concomitant]
     Active Substance: VORICONAZOLE
     Dosage: 400 MG, 2X/DAY
     Route: 041
     Dates: start: 20110704, end: 20110718
  41. TARGOCID [Concomitant]
     Active Substance: TEICOPLANIN
     Dosage: 400 MG, 2X/DAY
     Route: 041
     Dates: start: 20110706, end: 20110714
  42. CIPROFLOXACIN [Concomitant]
     Active Substance: CIPROFLOXACIN
     Dosage: 200 MG, 3X/DAY
     Route: 048
     Dates: start: 20110715, end: 20110718
  43. SLOW-K [Concomitant]
     Active Substance: POTASSIUM CHLORIDE
     Dosage: 600 MG, 2X/DAY
     Route: 048
     Dates: start: 20110630, end: 20110724

REACTIONS (27)
  - Pneumonia [Recovering/Resolving]
  - Interstitial lung disease [Recovering/Resolving]
  - Herpes zoster [Unknown]
  - Renal disorder [Unknown]
  - Anaemia [Unknown]
  - Platelet count decreased [Unknown]
  - Leukopenia [Unknown]
  - Neutropenia [Unknown]
  - Lymphopenia [Unknown]
  - Blood albumin decreased [Unknown]
  - Alanine aminotransferase increased [Unknown]
  - Hyperglycaemia [Unknown]
  - Blood sodium decreased [Unknown]
  - Blood potassium decreased [Unknown]
  - Febrile neutropenia [Unknown]
  - Constipation [Unknown]
  - Headache [Unknown]
  - Stomatitis [Unknown]
  - Gastroenteritis [Unknown]
  - Balanoposthitis [Unknown]
  - Oedema [Unknown]
  - Cytomegalovirus enterocolitis [Unknown]
  - Antithrombin III decreased [Unknown]
  - Blood pressure increased [Unknown]
  - Blood fibrinogen decreased [Unknown]
  - Nausea [Unknown]
  - Alopecia [Unknown]

NARRATIVE: CASE EVENT DATE: 20110102
